FAERS Safety Report 16576769 (Version 4)
Quarter: 2020Q1

REPORT INFORMATION
  Report Type: Report from Study
  Country: US (occurrence: US)
  Receive Date: 20190716
  Receipt Date: 20200124
  Transmission Date: 20200409
  Serious: Yes (Other)
  Sender: FDA-Public Use
  Company Number: PHEH2019US029496

PATIENT
  Sex: Male

DRUGS (1)
  1. ENTRESTO [Suspect]
     Active Substance: SACUBITRIL\VALSARTAN
     Indication: PRODUCT USED FOR UNKNOWN INDICATION
     Dosage: UNK
     Route: 065

REACTIONS (8)
  - Renal failure [Unknown]
  - Accident [Unknown]
  - Influenza [Unknown]
  - Pharyngitis streptococcal [Unknown]
  - Ejection fraction decreased [Unknown]
  - Eye injury [Unknown]
  - Malaise [Unknown]
  - Dehydration [Unknown]
